FAERS Safety Report 13309655 (Version 15)
Quarter: 2020Q4

REPORT INFORMATION
  Report Type: Spontaneous
  Country: US (occurrence: US)
  Receive Date: 20170309
  Receipt Date: 20201120
  Transmission Date: 20210113
  Serious: Yes (Hospitalization, Other)
  Sender: FDA-Public Use
  Company Number: US-PFIZER INC-2017099436

PATIENT
  Age: 69 Year
  Sex: Female
  Weight: 53 kg

DRUGS (24)
  1. REVATIO [Suspect]
     Active Substance: SILDENAFIL CITRATE
     Indication: PULMONARY ARTERIAL HYPERTENSION
     Dosage: 20 MG, 3X/DAY
     Route: 048
  2. REVATIO [Suspect]
     Active Substance: SILDENAFIL CITRATE
     Indication: HYPERTENSION
     Dosage: 20 MG, 3X/DAY
     Route: 048
     Dates: start: 201711
  3. REVATIO [Suspect]
     Active Substance: SILDENAFIL CITRATE
     Dosage: 30 MG, 3X/DAY
     Route: 048
     Dates: start: 2018
  4. LEVOTHYROXINE. [Concomitant]
     Active Substance: LEVOTHYROXINE
     Dosage: 50 UG, DAILY
  5. POTASSIUM CHLORIDE. [Concomitant]
     Active Substance: POTASSIUM CHLORIDE
     Dosage: 20 MEQ, DAILY
  6. TRAMADOL. [Concomitant]
     Active Substance: TRAMADOL
     Dosage: 50 MG, AS NEEDED
  7. CYANOCOBALAMIN. [Concomitant]
     Active Substance: CYANOCOBALAMIN
     Dosage: 1 ML, UNK
  8. MIRTAZAPINE. [Concomitant]
     Active Substance: MIRTAZAPINE
     Dosage: 75 MG, UNK
  9. ONDANSETRON [Concomitant]
     Active Substance: ONDANSETRON
     Dosage: UNK [4-8 MG WHEN NEEDED]
  10. REVATIO [Suspect]
     Active Substance: SILDENAFIL CITRATE
     Dosage: 30 MG, 3X/DAY
  11. TYLENOL [Concomitant]
     Active Substance: ACETAMINOPHEN
     Dosage: UNK, AS NEEDED [500 MG 1 OR 2 TABS AS NEEDED]
  12. REVATIO [Suspect]
     Active Substance: SILDENAFIL CITRATE
     Dosage: 30 MG, 3X/DAY (1.5 TABLETS)
     Route: 048
  13. CENTRUM SILVER [Concomitant]
     Active Substance: MINERALS\VITAMINS
     Dosage: 1 DF, DAILY [1 TAB DAILY]
  14. REFRESH TEARS [Concomitant]
     Active Substance: CARBOXYMETHYLCELLULOSE SODIUM
     Indication: DRY EYE
     Dosage: UNK, DAILY [1 TO 3X^S DAILY]
  15. REVATIO [Suspect]
     Active Substance: SILDENAFIL CITRATE
     Dosage: 30 MG, 3X/DAY (1.5 TABLETS)
     Route: 048
  16. ORENITRAM [Concomitant]
     Active Substance: TREPROSTINIL
     Dosage: UNK
  17. ONDANSETRON [Concomitant]
     Active Substance: ONDANSETRON
     Dosage: 4 MG, AS NEEDED
  18. PROPRANOLOL [Concomitant]
     Active Substance: PROPRANOLOL HYDROCHLORIDE
     Dosage: 10 MG, 1X/DAY (1/2 TAB ONCE A DAY AT 6 AM)
  19. OMEPRAZOLE. [Concomitant]
     Active Substance: OMEPRAZOLE
     Dosage: 20 MG, DAILY
  20. SPIRONOLACTONE. [Concomitant]
     Active Substance: SPIRONOLACTONE
     Dosage: 50 MG, DAILY
  21. REVATIO [Suspect]
     Active Substance: SILDENAFIL CITRATE
     Dosage: 30 MG (1.5 TABLET ), 3X/DAY
     Route: 048
     Dates: start: 2018
  22. SPIRONOLACTONE. [Concomitant]
     Active Substance: SPIRONOLACTONE
     Dosage: 25 MG, DAILY
  23. PROPRANOLOL [Concomitant]
     Active Substance: PROPRANOLOL HYDROCHLORIDE
     Dosage: 10 MG, DAILY [20 MG/ 1/2 TAB DAILY]
  24. CALCIUM CITRATE [Concomitant]
     Active Substance: CALCIUM CITRATE
     Dosage: 1000 MG, UNK

REACTIONS (9)
  - Ankle fracture [Unknown]
  - Hepatic cirrhosis [Recovering/Resolving]
  - Visual impairment [Unknown]
  - Musculoskeletal stiffness [Unknown]
  - Hip fracture [Recovered/Resolved]
  - Foot fracture [Recovered/Resolved]
  - Prescribed overdose [Unknown]
  - Fall [Recovered/Resolved]
  - Body height decreased [Unknown]

NARRATIVE: CASE EVENT DATE: 2017
